FAERS Safety Report 4304603-4 (Version None)
Quarter: 2004Q1

REPORT INFORMATION
  Report Type: 
  Country: None (occurrence: None)
  Receive Date: 20040224
  Receipt Date: 20040212
  Transmission Date: 20041129
  Serious: Yes (Hospitalization)
  Sender: FDA-Public Use
  Company Number: A044-002-004838

PATIENT
  Age: 74 Year
  Sex: Male
  Weight: 70 kg

DRUGS (14)
  1. ARICEPT [Suspect]
     Indication: DEMENTIA ALZHEIMER'S TYPE
     Dosage: SEE IMAGE
     Route: 048
     Dates: start: 20030618, end: 20030803
  2. ARICEPT [Suspect]
     Indication: DEMENTIA ALZHEIMER'S TYPE
     Dosage: SEE IMAGE
     Route: 048
     Dates: start: 20030804, end: 20030810
  3. ARICEPT [Suspect]
     Indication: DEMENTIA ALZHEIMER'S TYPE
     Dosage: SEE IMAGE
     Route: 048
     Dates: start: 20030811, end: 20030817
  4. ARICEPT [Suspect]
     Indication: DEMENTIA ALZHEIMER'S TYPE
     Dosage: SEE IMAGE
     Route: 048
     Dates: start: 20030818, end: 20031104
  5. SELEXID(PIVMECILLINAM) [Concomitant]
  6. ZYPREXA [Concomitant]
  7. TRUXAL(CHLORPROTHIXENE HYDROCHLORIDE) [Concomitant]
  8. DEPRAKINE RETARD(VALPROATE SODIUM) [Concomitant]
  9. NITRAZEPAM [Concomitant]
  10. CIPRAMIL (CITALOPRAM HYDROBROMIDE) [Concomitant]
  11. LACTULOSE [Concomitant]
  12. LAMICTAL [Concomitant]
  13. MAGNYL(ACETYLSALICYLIC ACID) [Concomitant]
  14. BETOLVER (CYANOCOBALAMIN-TANNIN COMPLEX) [Concomitant]

REACTIONS (9)
  - CONDITION AGGRAVATED [None]
  - CONFUSIONAL STATE [None]
  - DELUSION [None]
  - DEPRESSION [None]
  - PSYCHOMOTOR HYPERACTIVITY [None]
  - PSYCHOTIC DISORDER [None]
  - SLEEP DISORDER [None]
  - SPEECH DISORDER [None]
  - URINARY TRACT INFECTION [None]
